FAERS Safety Report 10171301 (Version 1)
Quarter: 2014Q2

REPORT INFORMATION
  Report Type: Spontaneous
  Country: US (occurrence: US)
  Receive Date: 20140514
  Receipt Date: 20140514
  Transmission Date: 20141212
  Serious: Yes (Hospitalization)
  Sender: FDA-Public Use
  Company Number: US-PFIZER INC-2014131506

PATIENT
  Age: 68 Year
  Sex: Male
  Weight: 146.9 kg

DRUGS (1)
  1. AMIODARONE HCL [Suspect]
     Indication: ARRHYTHMIA
     Dosage: UNK
     Dates: start: 2011, end: 20140414

REACTIONS (1)
  - Dyspnoea [Unknown]
